FAERS Safety Report 5214127-8 (Version None)
Quarter: 2007Q1

REPORT INFORMATION
  Report Type: 
  Country: None (occurrence: None)
  Receive Date: 20070116
  Receipt Date: 20070105
  Transmission Date: 20070707
  Serious: Yes (Life-Threatening, Hospitalization)
  Sender: FDA-Public Use
  Company Number: HQWYE616405JAN07

PATIENT
  Age: 51 Year
  Sex: Male

DRUGS (14)
  1. CORDARONE [Suspect]
     Indication: ATRIAL FIBRILLATION
     Dosage: 6 MG/ML (TOTAL AMOUNT ADMINISTERED WAS NOT PROVIDED) INTRAVENOUS
     Route: 042
     Dates: start: 20060512, end: 20060512
  2. CORDARONE [Suspect]
     Indication: ATRIAL FIBRILLATION
     Dosage: 200 MG 2X PER 1 DAY ORAL
     Route: 048
     Dates: start: 20060513, end: 20060522
  3. PLAVIX [Suspect]
     Indication: MYOCARDIAL INFARCTION
     Dosage: 75 MG 1X PER 1 DAY ORAL
     Route: 048
     Dates: start: 20060510, end: 20060607
  4. PLENDIL [Concomitant]
  5. ASPIRIN [Concomitant]
  6. HYTACAND (CANDESARTAN CILEXETIL/HYDROCHLOROTHIAZIDE) [Concomitant]
  7. METFORMIN HCL [Concomitant]
  8. SIMVASTATIN [Concomitant]
  9. FUROSEMIDE [Concomitant]
  10. SELOKEEN ZOC (METOPROLOL SUCCINATE) [Concomitant]
  11. ACTRAPID HUMAN (INSULIN HUMAN) [Concomitant]
  12. OMEPRAZOLE [Concomitant]
  13. FLUOXETINE [Concomitant]
  14. KLEXAN (HEPARIN-FRACTION, SODIUM SALT) [Concomitant]

REACTIONS (6)
  - CARDIAC FAILURE [None]
  - CATHETER RELATED INFECTION [None]
  - INTERSTITIAL LUNG DISEASE [None]
  - MYOCARDIAL INFARCTION [None]
  - NEUROPATHY [None]
  - STAPHYLOCOCCAL SEPSIS [None]
